FAERS Safety Report 14029950 (Version 1)
Quarter: 2017Q3

REPORT INFORMATION
  Report Type: Spontaneous
  Country: US (occurrence: US)
  Receive Date: 20170930
  Receipt Date: 20170930
  Transmission Date: 20171128
  Serious: No
  Sender: FDA-Public Use
  Company Number: US-SA-2017SA115531

PATIENT
  Age: 62 Year
  Sex: Male
  Weight: 68.49 kg

DRUGS (1)
  1. AUBAGIO [Suspect]
     Active Substance: TERIFLUNOMIDE
     Indication: MULTIPLE SCLEROSIS
     Route: 048
     Dates: start: 20160505

REACTIONS (3)
  - Neck pain [Unknown]
  - Dizziness [Unknown]
  - White blood cell count decreased [Unknown]
